FAERS Safety Report 6992344-4 (Version None)
Quarter: 2010Q3

REPORT INFORMATION
  Report Type: 
  Country: None (occurrence: None)
  Receive Date: 20100917
  Receipt Date: 20100911
  Transmission Date: 20110219
  Serious: Yes (Hospitalization, Other)
  Sender: FDA-Public Use
  Company Number: CA-BAYER-201030830NA

PATIENT
  Age: 72 Year
  Sex: Female
  Weight: 52 kg

DRUGS (1)
  1. AVELOX [Suspect]
     Indication: COUGH
     Dosage: TOTAL DAILY DOSE: 400 MG  UNIT DOSE: 400 MG
     Route: 048

REACTIONS (5)
  - ACUTE RESPIRATORY FAILURE [None]
  - BRONCHOSPASM [None]
  - EYE SWELLING [None]
  - URTICARIA [None]
  - WHEEZING [None]
